FAERS Safety Report 9578597 (Version 1)
Quarter: 2013Q4

REPORT INFORMATION
  Report Type: Spontaneous
  Country: US (occurrence: US)
  Receive Date: 20131001
  Receipt Date: 20131001
  Transmission Date: 20140711
  Serious: No
  Sender: FDA-Public Use
  Company Number: US-AMGEN-USASP2013013496

PATIENT
  Sex: Male

DRUGS (1)
  1. PROCRIT [Suspect]
     Indication: RENAL FAILURE CHRONIC
     Dosage: UNK

REACTIONS (5)
  - Haemoglobin decreased [Unknown]
  - Lethargy [Unknown]
  - Fatigue [Unknown]
  - Hypersomnia [Unknown]
  - Exercise tolerance decreased [Unknown]
